FAERS Safety Report 21900153 (Version 1)
Quarter: 2023Q1

REPORT INFORMATION
  Report Type: Spontaneous
  Country: US (occurrence: US)
  Receive Date: 20230123
  Receipt Date: 20230123
  Transmission Date: 20230417
  Serious: Yes (Other)
  Sender: FDA-Public Use
  Company Number: US-009507513-2301USA007662

PATIENT
  Age: 77 Year
  Sex: Male

DRUGS (1)
  1. KEYTRUDA [Suspect]
     Active Substance: PEMBROLIZUMAB
     Indication: Chordoma
     Dosage: 200 MG, EVERY 3 WEEKS

REACTIONS (6)
  - Immune-mediated adrenal insufficiency [Recovering/Resolving]
  - Hypopituitarism [Recovering/Resolving]
  - Fatigue [Recovering/Resolving]
  - Hypotension [Recovering/Resolving]
  - Dyspnoea exertional [Recovering/Resolving]
  - Product use in unapproved indication [Unknown]
